FAERS Safety Report 25910826 (Version 3)
Quarter: 2025Q4

REPORT INFORMATION
  Report Type: Other
  Country: US (occurrence: US)
  Receive Date: 20251013
  Receipt Date: 20251025
  Transmission Date: 20260118
  Serious: No
  Sender: TRAVERE THERAPEUTICS
  Company Number: US-TRAVERE-2025TVT01542

PATIENT
  Age: 51 Year
  Sex: Female

DRUGS (2)
  1. FILSPARI [Suspect]
     Active Substance: SPARSENTAN
     Indication: IgA nephropathy
     Route: 048
     Dates: start: 20250806, end: 20250806
  2. FILSPARI [Suspect]
     Active Substance: SPARSENTAN
     Route: 048
     Dates: start: 202508

REACTIONS (5)
  - Headache [None]
  - Dizziness postural [None]
  - Fatigue [Unknown]
  - Hypersomnia [Unknown]
  - Hypotension [None]

NARRATIVE: CASE EVENT DATE: 20250827
